FAERS Safety Report 26134020 (Version 2)
Quarter: 2025Q4

REPORT INFORMATION
  Report Type: Spontaneous
  Country: RU (occurrence: RU)
  Receive Date: 20251209
  Receipt Date: 20251223
  Transmission Date: 20260118
  Serious: Yes (Hospitalization, Other)
  Sender: RANBAXY
  Company Number: RU-SUN PHARMACEUTICAL INDUSTRIES INC-2025R1-540107

PATIENT
  Age: 37 Year
  Sex: Male

DRUGS (4)
  1. ALFACALCIDOL [Suspect]
     Active Substance: ALFACALCIDOL
     Indication: Hyperparathyroidism secondary
     Dosage: 0.5 MILLIGRAM, DAILY
     Route: 065
  2. CALCIUM CARBONATE [Suspect]
     Active Substance: CALCIUM CARBONATE
     Indication: Hyperparathyroidism secondary
     Dosage: 420 MILLIGRAM
     Route: 065
  3. CINACALCET [Suspect]
     Active Substance: CINACALCET
     Indication: Hyperparathyroidism secondary
     Dosage: 60 MILLIGRAM, DAILY
     Route: 065
  4. SEVELAMER [Suspect]
     Active Substance: SEVELAMER
     Indication: Hyperparathyroidism secondary
     Dosage: 4800 MILLIGRAM, DAILY
     Route: 065

REACTIONS (1)
  - Brown tumour [Unknown]
